FAERS Safety Report 9230085 (Version 1)
Quarter: 2013Q2

REPORT INFORMATION
  Report Type: Spontaneous
  Country: US (occurrence: None)
  Receive Date: 20130412
  Receipt Date: 20130412
  Transmission Date: 20140414
  Serious: No
  Sender: FDA-Public Use
  Company Number: None

PATIENT
  Age: 46 Year
  Sex: Female
  Weight: 54.43 kg

DRUGS (1)
  1. MONISTAT 3 [Suspect]
     Indication: FUNGAL INFECTION
     Dosage: 1 APPLICATOR
     Route: 067
     Dates: start: 20130410, end: 20130410

REACTIONS (7)
  - Pruritus [None]
  - Crying [None]
  - Dizziness [None]
  - Hypersensitivity [None]
  - Muscle spasms [None]
  - Burning sensation [None]
  - Swelling [None]
